FAERS Safety Report 8543302-X (Version None)
Quarter: 2012Q3

REPORT INFORMATION
  Report Type: 
  Country: None (occurrence: None)
  Receive Date: 20120716
  Receipt Date: 20120706
  Transmission Date: 20120928
  Serious: Yes (Other)
  Sender: FDA-Public Use
  Company Number: 7146004

PATIENT
  Age: 31 Year
  Sex: Male

DRUGS (2)
  1. LEVOTHYROXINE SODIUM [Suspect]
     Indication: AUTOIMMUNE THYROIDITIS
     Dosage: (125 MCG, HALF A TABLET) ORAL
     Route: 048
  2. LEVOTHYROXINE SODIUM [Suspect]
     Indication: AUTOIMMUNE THYROIDITIS
     Dosage: (50 MCG, 1 IN 1 D) ORAL
     Route: 048

REACTIONS (1)
  - HYPERTHYROIDISM [None]
